FAERS Safety Report 4292740-2 (Version None)
Quarter: 2004Q1

REPORT INFORMATION
  Report Type: 
  Country: None (occurrence: None)
  Receive Date: 20040211
  Receipt Date: 20030730
  Transmission Date: 20041129
  Serious: Yes (Hospitalization)
  Sender: FDA-Public Use
  Company Number: WAES 0307USA03456

PATIENT
  Age: 71 Year
  Sex: Female
  Weight: 73 kg

DRUGS (9)
  1. XANAX [Concomitant]
     Dates: start: 20000101, end: 20031001
  2. ASPIRIN [Concomitant]
     Dates: start: 19980101
  3. CELEBREX [Concomitant]
  4. ZYRTEC [Concomitant]
  5. PROZAC [Concomitant]
     Dates: start: 19990101
  6. ZESTRIL [Concomitant]
     Indication: HYPERTENSION
     Dates: start: 19950101
  7. NAPROXEN [Concomitant]
  8. PRILOSEC [Concomitant]
  9. VIOXX [Suspect]
     Indication: OSTEOARTHRITIS
     Route: 048
     Dates: start: 20010701, end: 20010801

REACTIONS (17)
  - CELLULITIS [None]
  - CORONARY ARTERY DISEASE [None]
  - CORONARY ARTERY THROMBOSIS [None]
  - ELECTROCARDIOGRAM ST SEGMENT ELEVATION [None]
  - ELECTROCARDIOGRAM T WAVE INVERSION [None]
  - EMOTIONAL DISTRESS [None]
  - HAEMANGIOMA [None]
  - HYPERLIPIDAEMIA [None]
  - HYPERTENSION [None]
  - MYOCARDIAL INFARCTION [None]
  - MYOCARDIAL ISCHAEMIA [None]
  - NERVOUSNESS [None]
  - OEDEMA PERIPHERAL [None]
  - RADICULOPATHY [None]
  - SINUS BRADYCARDIA [None]
  - SPONDYLOSIS [None]
  - URETHRITIS [None]
